FAERS Safety Report 5891027-1 (Version None)
Quarter: 2008Q3

REPORT INFORMATION
  Report Type: 
  Country: None (occurrence: None)
  Receive Date: 20080922
  Receipt Date: 20080909
  Transmission Date: 20090109
  Serious: Yes (Congenital Anomaly)
  Sender: FDA-Public Use
  Company Number: B0537897A

PATIENT

DRUGS (8)
  1. CETIRIZINE HCL [Suspect]
  2. MONTELUKAST SODIUM [Suspect]
  3. CROMOGLYCATE [Suspect]
  4. REPROTEROL [Suspect]
  5. PREDNISOLONE [Suspect]
     Dosage: 5MG PER DAY
  6. ALBUTEROL SPIROS [Suspect]
  7. LEVOTHYROXINE SODIUM [Suspect]
  8. AMOXICILLIN [Suspect]

REACTIONS (2)
  - DRUG EXPOSURE DURING PREGNANCY [None]
  - HAEMANGIOMA [None]
